FAERS Safety Report 5618531-5 (Version None)
Quarter: 2008Q1

REPORT INFORMATION
  Report Type: 
  Country: None (occurrence: None)
  Receive Date: 20080204
  Receipt Date: 20080121
  Transmission Date: 20080703
  Serious: Yes (Death)
  Sender: FDA-Public Use
  Company Number: SPV1-2008-00131

PATIENT
  Age: 38 Year
  Sex: Female

DRUGS (4)
  1. CARBAMAZEPINE [Suspect]
     Dosage: ORAL
     Route: 048
  2. BETA BLOCKING AGENTS() [Suspect]
     Dosage: ORAL
     Route: 048
  3. TRAZODONE HCL [Suspect]
     Dosage: ORAL
     Route: 048
  4. ANTIHISTAMINES() [Suspect]
     Dosage: ORAL
     Route: 048

REACTIONS (1)
  - COMPLETED SUICIDE [None]
